FAERS Safety Report 25684851 (Version 5)
Quarter: 2025Q3

REPORT INFORMATION
  Report Type: Report from Study
  Country: EU (occurrence: EU)
  Receive Date: 20250815
  Receipt Date: 20250926
  Transmission Date: 20251020
  Serious: Yes (Death, Life-Threatening, Hospitalization, Disabling, Other)
  Sender: JOHNSON AND JOHNSON
  Company Number: EU-JNJFOC-20250219068

PATIENT
  Age: 68 Year
  Sex: Male

DRUGS (29)
  1. CILTACABTAGENE AUTOLEUCEL [Suspect]
     Active Substance: CILTACABTAGENE AUTOLEUCEL
     Indication: Plasma cell myeloma
     Route: 042
     Dates: start: 20241120, end: 20241120
  2. ALLOPURINOL [Concomitant]
     Active Substance: ALLOPURINOL
     Indication: Prophylaxis
     Route: 048
     Dates: start: 20241120, end: 20241217
  3. CANDESARTAN [Concomitant]
     Active Substance: CANDESARTAN
     Indication: Hypertension
     Route: 048
     Dates: start: 20241120
  4. PANTOPRAZOLE [PANTOPRAZOLE SODIUM] [Concomitant]
     Indication: Prophylaxis of nausea and vomiting
     Route: 048
     Dates: start: 20241120, end: 20241217
  5. PANTOPRAZOLE [PANTOPRAZOLE SODIUM] [Concomitant]
     Route: 048
     Dates: start: 20241217, end: 20241223
  6. SODIUM CHLORIDE [Concomitant]
     Active Substance: SODIUM CHLORIDE
     Indication: Product substitution
     Dosage: 10 DOSE
     Route: 042
     Dates: start: 20241120, end: 20241120
  7. SODIUM CHLORIDE [Concomitant]
     Active Substance: SODIUM CHLORIDE
     Dosage: 10 DOSE
     Route: 042
     Dates: start: 20241121, end: 20241121
  8. SODIUM CHLORIDE [Concomitant]
     Active Substance: SODIUM CHLORIDE
     Dosage: 10 DOSE
     Route: 042
     Dates: start: 20241122, end: 20241122
  9. SODIUM CHLORIDE [Concomitant]
     Active Substance: SODIUM CHLORIDE
     Dosage: 10 DOSE
     Route: 042
     Dates: start: 20241123, end: 20241123
  10. SODIUM CHLORIDE [Concomitant]
     Active Substance: SODIUM CHLORIDE
     Dosage: 10 DOSE
     Route: 042
     Dates: start: 20241124, end: 20241124
  11. SODIUM CHLORIDE [Concomitant]
     Active Substance: SODIUM CHLORIDE
     Dosage: 10 DOSE
     Route: 042
     Dates: start: 20241125, end: 20241125
  12. SODIUM CHLORIDE [Concomitant]
     Active Substance: SODIUM CHLORIDE
     Dosage: 10 DOSE
     Route: 042
     Dates: start: 20241126, end: 20241126
  13. SODIUM CHLORIDE [Concomitant]
     Active Substance: SODIUM CHLORIDE
     Dosage: 10 DOSE
     Route: 042
     Dates: start: 20241127, end: 20241127
  14. SODIUM CHLORIDE [Concomitant]
     Active Substance: SODIUM CHLORIDE
     Dosage: 10 DOSE
     Route: 042
     Dates: start: 20241128, end: 20241128
  15. CALCIUMGLUCONAT [Concomitant]
     Indication: Supplementation therapy
     Route: 042
     Dates: start: 20241121, end: 20241121
  16. CALCIUMGLUCONAT [Concomitant]
     Route: 042
     Dates: start: 20241127, end: 20241127
  17. SODIUM PHOSPHATE [Concomitant]
     Active Substance: SODIUM PHOSPHATE
     Indication: Supplementation therapy
     Route: 042
     Dates: start: 20241124, end: 20241125
  18. SODIUM PHOSPHATE [Concomitant]
     Active Substance: SODIUM PHOSPHATE
     Route: 042
     Dates: start: 20241122, end: 20241122
  19. SODIUM PHOSPHATE [Concomitant]
     Active Substance: SODIUM PHOSPHATE
     Route: 042
     Dates: start: 20241127, end: 20241127
  20. SODIUM PHOSPHATE [Concomitant]
     Active Substance: SODIUM PHOSPHATE
     Route: 042
     Dates: start: 20241129, end: 20241129
  21. LASIX [Concomitant]
     Active Substance: FUROSEMIDE
     Indication: Oedema peripheral
     Route: 042
     Dates: start: 20241122, end: 20241123
  22. POTASSIUM CHLORIDE [Concomitant]
     Active Substance: POTASSIUM CHLORIDE
     Indication: Prophylaxis
     Route: 048
     Dates: start: 20241124, end: 20241130
  23. OPTIGLOBIN [Concomitant]
     Indication: Product substitution
     Route: 042
     Dates: start: 20241125, end: 20241127
  24. NOVALGINA [Concomitant]
     Active Substance: ACETAMINOPHEN\CAFFEINE
     Indication: Abdominal pain
     Route: 048
     Dates: start: 20250117
  25. ACYCLOVIR [Concomitant]
     Active Substance: ACYCLOVIR
     Indication: Antiviral prophylaxis
     Route: 048
     Dates: start: 20241202, end: 20250106
  26. ACYCLOVIR [Concomitant]
     Active Substance: ACYCLOVIR
     Route: 048
     Dates: start: 20250114
  27. CALCIUM CHLORIDE\MAGNESIUM CHLORIDE\POTASSIUM CHLORIDE\SODIUM ACETATE\ [Concomitant]
     Active Substance: CALCIUM CHLORIDE\MAGNESIUM CHLORIDE\POTASSIUM CHLORIDE\SODIUM ACETATE\SODIUM CHLORIDE
     Indication: Supplementation therapy
     Route: 042
     Dates: start: 20250115, end: 20250115
  28. ZOPICLONE [Concomitant]
     Active Substance: ZOPICLONE
     Indication: Prophylaxis
     Dates: start: 20250114, end: 20250114
  29. SULFAMETHOXAZOLE\TRIMETHOPRIM [Concomitant]
     Active Substance: SULFAMETHOXAZOLE\TRIMETHOPRIM
     Indication: Infection prophylaxis
     Route: 048
     Dates: start: 20241217, end: 20250116

REACTIONS (24)
  - Gastric cancer [Fatal]
  - Cytokine release syndrome [Recovered/Resolved]
  - Bacteraemia [Recovered/Resolved]
  - Thrombocytopenia [Recovered/Resolved]
  - Secondary immunodeficiency [Recovered/Resolved]
  - Gastric ulcer [Recovered/Resolved]
  - Diarrhoea [Recovered/Resolved]
  - Decreased appetite [Not Recovered/Not Resolved]
  - Fatigue [Not Recovered/Not Resolved]
  - Anaemia [Recovering/Resolving]
  - Back pain [Not Recovered/Not Resolved]
  - Gastrooesophageal reflux disease [Not Recovered/Not Resolved]
  - Pyrexia [Recovered/Resolved]
  - Vitamin B complex deficiency [Recovered/Resolved]
  - Folate deficiency [Recovered/Resolved]
  - Chills [Recovered/Resolved]
  - Weight decreased [Recovered/Resolved]
  - Vitamin D deficiency [Recovering/Resolving]
  - Sinus tachycardia [Recovered/Resolved]
  - Dyspnoea exertional [Recovered/Resolved]
  - Nausea [Not Recovered/Not Resolved]
  - Vomiting [Not Recovered/Not Resolved]
  - Hypergammaglobulinaemia [Recovered/Resolved]
  - Pain in extremity [Recovered/Resolved]

NARRATIVE: CASE EVENT DATE: 20241122
